FAERS Safety Report 19271697 (Version 3)
Quarter: 2021Q2

REPORT INFORMATION
  Report Type: Other
  Country: AU (occurrence: AU)
  Receive Date: 20210519
  Receipt Date: 20210624
  Transmission Date: 20210717
  Serious: Yes (Other)
  Sender: FDA-Public Use
  Company Number: AU-GENERIC HEALTH PTY. LTD.-2021-06937

PATIENT
  Sex: Female

DRUGS (1)
  1. PHENELZINE SULFATE. [Suspect]
     Active Substance: PHENELZINE SULFATE
     Indication: PRODUCT USED FOR UNKNOWN INDICATION
     Dosage: 15 MILLIGRAM (60 TABLET)
     Route: 065

REACTIONS (5)
  - Suicidal ideation [Unknown]
  - Negative thoughts [Unknown]
  - Mental disorder [Unknown]
  - Drug ineffective [Unknown]
  - Depression [Unknown]
